FAERS Safety Report 5004650-3 (Version None)
Quarter: 2006Q2

REPORT INFORMATION
  Report Type: 
  Country: None (occurrence: None)
  Receive Date: 20060517
  Receipt Date: 20060505
  Transmission Date: 20061013
  Serious: Yes (Death, Other)
  Sender: FDA-Public Use
  Company Number: US-BRISTOL-MYERS SQUIBB COMPANY-13379532

PATIENT
  Age: 70 Year
  Sex: Male

DRUGS (4)
  1. ERBITUX [Suspect]
     Indication: TONGUE NEOPLASM MALIGNANT STAGE UNSPECIFIED
     Dates: start: 20040201
  2. CISPLATIN [Concomitant]
     Indication: TONGUE NEOPLASM MALIGNANT STAGE UNSPECIFIED
     Dates: start: 20040201
  3. PACLITAXEL [Concomitant]
     Indication: TONGUE NEOPLASM MALIGNANT STAGE UNSPECIFIED
     Dates: start: 20040201
  4. CEPHALEXIN [Concomitant]
     Indication: WOUND INFECTION
     Dates: start: 20040401

REACTIONS (9)
  - DERMATITIS ACNEIFORM [None]
  - DISEASE PROGRESSION [None]
  - FISTULA [None]
  - FOLLICULITIS [None]
  - LYMPHADENOPATHY [None]
  - PARONYCHIA [None]
  - PNEUMONIA ASPIRATION [None]
  - SKIN FISSURES [None]
  - STAPHYLOCOCCAL INFECTION [None]
